FAERS Safety Report 4806249-8 (Version None)
Quarter: 2005Q4

REPORT INFORMATION
  Report Type: 
  Country: None (occurrence: None)
  Receive Date: 20051019
  Receipt Date: 20050930
  Transmission Date: 20060501
  Serious: Yes (Hospitalization, Disabling)
  Sender: FDA-Public Use
  Company Number: US_0510122672

PATIENT
  Age: 52 Year
  Sex: Female
  Weight: 135 kg

DRUGS (2)
  1. ZYPREXA [Suspect]
     Dates: start: 19970201, end: 20031101
  2. ABILIFY [Concomitant]

REACTIONS (6)
  - ATRIAL FLUTTER [None]
  - CARDIAC DISORDER [None]
  - CARDIAC FAILURE [None]
  - EYE DISORDER [None]
  - GLYCOSYLATED HAEMOGLOBIN INCREASED [None]
  - WEIGHT INCREASED [None]
